FAERS Safety Report 9434865 (Version 1)
Quarter: 2013Q3

REPORT INFORMATION
  Report Type: Spontaneous
  Country: JP (occurrence: JP)
  Receive Date: 20130801
  Receipt Date: 20130801
  Transmission Date: 20140515
  Serious: Yes (Hospitalization, Other)
  Sender: FDA-Public Use
  Company Number: JP-009507513-1307JPN016323

PATIENT
  Age: 75 Year
  Sex: Female

DRUGS (2)
  1. BONALON [Suspect]
     Indication: OSTEOPOROSIS
     Dosage: 5 MG DAILY
     Route: 048
  2. WARFARIN POTASSIUM [Concomitant]

REACTIONS (1)
  - Femur fracture [Unknown]
